FAERS Safety Report 4989039-5 (Version None)
Quarter: 2006Q2

REPORT INFORMATION
  Report Type: 
  Country: None (occurrence: None)
  Receive Date: 20060425
  Receipt Date: 20060417
  Transmission Date: 20061013
  Serious: Yes (Other)
  Sender: FDA-Public Use
  Company Number: 2006052342

PATIENT
  Sex: Female
  Weight: 87.9978 kg

DRUGS (3)
  1. LYRICA [Suspect]
     Indication: DIABETES MELLITUS
     Dosage: 1 IN 1 D
     Dates: start: 20060101
  2. PREGABALIN (PREGABALIN) [Suspect]
     Indication: ILL-DEFINED DISORDER
  3. ALL OTHER THERAPEUTIC PRODUCTS [Suspect]

REACTIONS (9)
  - CARDIAC FAILURE [None]
  - DIABETES MELLITUS [None]
  - DRUG INEFFECTIVE [None]
  - DYSKINESIA [None]
  - HEART RATE INCREASED [None]
  - HEART RATE IRREGULAR [None]
  - NERVE INJURY [None]
  - PARAESTHESIA [None]
  - RESTLESS LEGS SYNDROME [None]
